FAERS Safety Report 5153444-7 (Version None)
Quarter: 2006Q4

REPORT INFORMATION
  Report Type: 
  Country: None (occurrence: None)
  Receive Date: 20061117
  Receipt Date: 20060919
  Transmission Date: 20070319
  Serious: Yes (Other)
  Sender: FDA-Public Use
  Company Number: US-ABBOTT-06P-163-0344401-00

PATIENT
  Sex: Male
  Weight: 97.7 kg

DRUGS (7)
  1. HUMIRA [Suspect]
     Indication: RHEUMATOID ARTHRITIS
     Route: 058
     Dates: start: 20030901
  2. ATORVASTATIN CALCIUM [Concomitant]
     Indication: BLOOD CHOLESTEROL INCREASED
     Route: 048
     Dates: start: 20010101
  3. IRBESARTAN [Concomitant]
     Indication: HYPERTENSION
     Route: 048
     Dates: start: 20060601
  4. SETRALINE HCL [Concomitant]
     Indication: DEPRESSION
     Route: 048
     Dates: start: 20030101
  5. ALPRAZOLAM [Concomitant]
     Indication: ANXIETY
     Route: 048
     Dates: start: 20000101
  6. TEMAZEPAM [Concomitant]
     Indication: INSOMNIA
     Route: 048
     Dates: start: 20000101
  7. GABAPENTIN [Concomitant]
     Indication: CONVULSION
     Route: 048
     Dates: start: 20060601

REACTIONS (4)
  - BURNING SENSATION [None]
  - CEREBROVASCULAR ACCIDENT [None]
  - LIPOMA [None]
  - MIGRAINE [None]
